FAERS Safety Report 13125733 (Version 2)
Quarter: 2017Q1

REPORT INFORMATION
  Report Type: Spontaneous
  Country: JP (occurrence: JP)
  Receive Date: 20170118
  Receipt Date: 20170210
  Transmission Date: 20170428
  Serious: Yes (Hospitalization)
  Sender: FDA-Public Use
  Company Number: JP-EISAI MEDICAL RESEARCH-EC-2017-024073

PATIENT
  Age: 64 Year
  Sex: Female

DRUGS (1)
  1. LENVIMA [Suspect]
     Active Substance: LENVATINIB
     Indication: THYROID CANCER
     Route: 048
     Dates: start: 20160812, end: 20170103

REACTIONS (5)
  - Generalised oedema [Recovering/Resolving]
  - Proteinuria [Recovering/Resolving]
  - Nephrotic syndrome [Recovering/Resolving]
  - Platelet count decreased [Recovering/Resolving]
  - Hypoproteinaemia [Recovering/Resolving]

NARRATIVE: CASE EVENT DATE: 20170103
